FAERS Safety Report 5103065-7 (Version None)
Quarter: 2006Q3

REPORT INFORMATION
  Report Type: 
  Country: None (occurrence: None)
  Receive Date: 20060907
  Receipt Date: 20060823
  Transmission Date: 20061208
  Serious: Yes (Other)
  Sender: FDA-Public Use
  Company Number: S06-ITA-03395-01

PATIENT
  Age: 75 Year
  Sex: Male

DRUGS (2)
  1. CIPRALEX (ESCITALOPRAM) [Suspect]
     Indication: BLUNTED AFFECT
     Dosage: 5 MG QD PO
     Route: 048
     Dates: start: 20060227, end: 20060303
  2. CIPRALEX (ESCITALOPRAM) [Suspect]
     Indication: DEPRESSED MOOD
     Dosage: 5 MG QD PO
     Route: 048
     Dates: start: 20060227, end: 20060303

REACTIONS (3)
  - GRAVITATIONAL OEDEMA [None]
  - RENAL FAILURE [None]
  - WEIGHT INCREASED [None]
